FAERS Safety Report 21193562 (Version 1)
Quarter: 2022Q3

REPORT INFORMATION
  Report Type: Spontaneous
  Country: CA (occurrence: CA)
  Receive Date: 20220810
  Receipt Date: 20220810
  Transmission Date: 20221026
  Serious: Yes (Other)
  Sender: FDA-Public Use
  Company Number: CA-TEVA-2022-CA-2062167

PATIENT
  Age: 21 Year
  Sex: Male

DRUGS (1)
  1. METHOTREXATE [Suspect]
     Active Substance: METHOTREXATE
     Indication: Product used for unknown indication
     Route: 058

REACTIONS (8)
  - Abdominal pain [Recovered/Resolved]
  - Abscess intestinal [Recovered/Resolved]
  - Aphthous ulcer [Recovered/Resolved]
  - Colitis [Recovered/Resolved]
  - Cryptitis [Recovered/Resolved]
  - Dehydration [Recovered/Resolved]
  - Diarrhoea haemorrhagic [Recovered/Resolved]
  - Drug ineffective [Recovered/Resolved]
